FAERS Safety Report 5739894-6 (Version None)
Quarter: 2008Q2

REPORT INFORMATION
  Report Type: 
  Country: None (occurrence: None)
  Receive Date: 20080513
  Receipt Date: 20080513
  Transmission Date: 20081010
  Serious: Yes (Other)
  Sender: FDA-Public Use
  Company Number: None

PATIENT
  Sex: Male
  Weight: 90.7194 kg

DRUGS (2)
  1. OXYCONTIN [Suspect]
     Indication: PROCEDURAL PAIN
     Dates: start: 20040205, end: 20040209
  2. OXYCONTIN [Suspect]
     Indication: SHOULDER OPERATION
     Dates: start: 20040205, end: 20040209

REACTIONS (2)
  - HEADACHE [None]
  - HYPERACUSIS [None]
